FAERS Safety Report 5025466-8 (Version None)
Quarter: 2006Q2

REPORT INFORMATION
  Report Type: 
  Country: None (occurrence: None)
  Receive Date: 20060608
  Receipt Date: 20060530
  Transmission Date: 20061013
  Serious: Yes (Death, Life-Threatening, Hospitalization, Other)
  Sender: FDA-Public Use
  Company Number: 163-20785-06040024

PATIENT
  Age: 81 Year
  Sex: Female

DRUGS (7)
  1. THALOMID [Suspect]
     Indication: MULTIPLE MYELOMA
     Dosage: 100 MG, DAILY, ORAL
     Route: 048
     Dates: start: 20050707, end: 20051101
  2. DECADRON SRC [Suspect]
     Dosage: 4 DAYS MONTHYLY
  3. DARVOCET [Concomitant]
  4. MEGACE [Concomitant]
  5. B6 VITAMIN (PYRIDOXINE HYDROCHLORIDE) [Concomitant]
  6. ALLOPURINOL [Concomitant]
  7. NORVASC [Concomitant]

REACTIONS (4)
  - ASTHENIA [None]
  - DISEASE PROGRESSION [None]
  - SEPSIS [None]
  - SOMNOLENCE [None]
